FAERS Safety Report 15627014 (Version 1)
Quarter: 2018Q4

REPORT INFORMATION
  Report Type: Spontaneous
  Country: US (occurrence: US)
  Receive Date: 20181116
  Receipt Date: 20181116
  Transmission Date: 20190205
  Serious: Yes (Other)
  Sender: FDA-Public Use
  Company Number: None

PATIENT
  Age: 34 Year
  Sex: Male

DRUGS (1)
  1. PROVIGIL [Suspect]
     Active Substance: MODAFINIL
     Route: 048

REACTIONS (4)
  - Migraine [None]
  - Drug interaction [None]
  - Dizziness [None]
  - Nasopharyngitis [None]

NARRATIVE: CASE EVENT DATE: 20181103
